FAERS Safety Report 8486399-8 (Version None)
Quarter: 2012Q3

REPORT INFORMATION
  Report Type: 
  Country: None (occurrence: None)
  Receive Date: 20120703
  Receipt Date: 20120629
  Transmission Date: 20120928
  Serious: Yes (Hospitalization)
  Sender: FDA-Public Use
  Company Number: KR-GLAXOSMITHKLINE-Z0010615C

PATIENT
  Sex: Male
  Weight: 59 kg

DRUGS (10)
  1. PAZOPANIB [Suspect]
     Indication: RENAL CELL CARCINOMA
     Dosage: 800MG PER DAY
     Route: 048
     Dates: start: 20101129
  2. PRAVASTATIN [Concomitant]
  3. EXFORGE [Concomitant]
  4. TAMSULOSIN HCL [Concomitant]
  5. TRAZODONE HCL [Concomitant]
  6. REBAMIPIDE [Concomitant]
  7. HALCION [Concomitant]
  8. MAGNESIUM SULFATE [Concomitant]
  9. ALPRAZOLAM [Concomitant]
  10. OXYCODONE HCL [Concomitant]

REACTIONS (1)
  - PYREXIA [None]
